FAERS Safety Report 16045448 (Version 3)
Quarter: 2020Q1

REPORT INFORMATION
  Report Type: Report from Study
  Country: CA (occurrence: CA)
  Receive Date: 20190307
  Receipt Date: 20200309
  Transmission Date: 20200409
  Serious: Yes (Other)
  Sender: FDA-Public Use
  Company Number: CA-SA-2019SA060436

PATIENT
  Age: 52 Year

DRUGS (6)
  1. PLERIXAFOR [Suspect]
     Active Substance: PLERIXAFOR
     Indication: HAEMATOPOIETIC STEM CELL MOBILISATION
  2. FLUDARABINE PHOSPHATE. [Suspect]
     Active Substance: FLUDARABINE PHOSPHATE
     Indication: BONE MARROW CONDITIONING REGIMEN
     Dosage: 50 MG/M2, QD
  3. PLERIXAFOR [Suspect]
     Active Substance: PLERIXAFOR
     Indication: TUMOUR CELL MOBILISATION
     Dosage: 240 UG/KG INJECTION 6 HOURS BEFORE THE ADMINISTRATION OF ?UDARABINE, FOLLOWED BY BUSULFAN
     Route: 058
  4. CYCLOSPORIN A [Concomitant]
     Active Substance: CYCLOSPORINE
     Indication: PROPHYLAXIS AGAINST GRAFT VERSUS HOST DISEASE
     Dosage: UNK
  5. CAMPATH [Concomitant]
     Active Substance: ALEMTUZUMAB
     Indication: PROPHYLAXIS AGAINST GRAFT VERSUS HOST DISEASE
     Dosage: UNK
  6. MYLERAN [Suspect]
     Active Substance: BUSULFAN
     Indication: BONE MARROW CONDITIONING REGIMEN
     Dosage: 3.2 MG/KG, QD

REACTIONS (4)
  - Febrile neutropenia [Unknown]
  - Cytomegalovirus infection [Unknown]
  - Herpes simplex [Unknown]
  - Mucosal inflammation [Unknown]
